FAERS Safety Report 7852404-2 (Version None)
Quarter: 2011Q4

REPORT INFORMATION
  Report Type: 
  Country: None (occurrence: None)
  Receive Date: 20111026
  Receipt Date: 20111017
  Transmission Date: 20120403
  Serious: Yes (Life-Threatening, Hospitalization, Other)
  Sender: FDA-Public Use
  Company Number: NL-AMGEN-NLDNI2011026401

PATIENT
  Age: 50 Year
  Sex: Female

DRUGS (8)
  1. DOCETAXEL [Suspect]
     Dosage: 140 MG, UNK
     Route: 042
     Dates: start: 20110512
  2. CYCLOPHOSPHAMIDE [Suspect]
     Dosage: 985 MG, UNK
     Route: 042
     Dates: start: 20110512
  3. DEXAMETHASONE [Concomitant]
  4. APREPITANT [Concomitant]
     Dosage: UNK
     Dates: start: 20110512, end: 20110515
  5. PANTOPRAZOLE [Concomitant]
  6. NEULASTA [Suspect]
     Indication: CHEMOTHERAPY
     Dosage: 6 MG, UNK
     Route: 058
     Dates: start: 20110513, end: 20110513
  7. DOXORUBICIN HCL [Suspect]
     Dosage: 94 MG, UNK
     Route: 042
     Dates: start: 20110512
  8. ONDANSETRON [Concomitant]
     Dosage: UNK

REACTIONS (9)
  - MASTECTOMY [None]
  - CANDIDURIA [None]
  - CLOSTRIDIUM BACTERAEMIA [None]
  - PYREXIA [None]
  - CLOSTRIDIAL INFECTION [None]
  - ABSCESS [None]
  - LEUKOPENIA [None]
  - MALAISE [None]
  - WOUND [None]
